FAERS Safety Report 10564729 (Version 1)
Quarter: 2014Q4

REPORT INFORMATION
  Report Type: Spontaneous
  Country: US (occurrence: US)
  Receive Date: 20141105
  Receipt Date: 20141105
  Transmission Date: 20150529
  Serious: Yes (Hospitalization, Other)
  Sender: FDA-Public Use
  Company Number: US-AMGEN-USASP2014084831

PATIENT
  Age: 51 Year
  Sex: Male

DRUGS (2)
  1. OTEZLA [Suspect]
     Active Substance: APREMILAST
     Indication: PRODUCT USED FOR UNKNOWN INDICATION
     Dosage: UNK (FOR APPROX. 3 MONTHS)
     Route: 065
     Dates: start: 2014
  2. ENBREL [Suspect]
     Active Substance: ETANERCEPT
     Indication: PSORIATIC ARTHROPATHY
     Dosage: 50 MG, QWK
     Route: 065
     Dates: start: 20120607, end: 20141022

REACTIONS (6)
  - Chondropathy [Recovered/Resolved]
  - Gastric disorder [Recovered/Resolved]
  - Knee arthroplasty [Recovered/Resolved]
  - Tonsillitis [Recovered/Resolved]
  - Joint stiffness [Not Recovered/Not Resolved]
  - Headache [Recovered/Resolved]

NARRATIVE: CASE EVENT DATE: 2014
